FAERS Safety Report 20711620 (Version 5)
Quarter: 2022Q2

REPORT INFORMATION
  Report Type: Report from Study
  Country: CO (occurrence: CO)
  Receive Date: 20220414
  Receipt Date: 20220606
  Transmission Date: 20220721
  Serious: Yes (Death, Hospitalization)
  Sender: FDA-Public Use
  Company Number: CO-NOVARTISPH-NVSC2022CO080995

PATIENT
  Age: 41 Year
  Sex: Female

DRUGS (3)
  1. TASIGNA [Suspect]
     Active Substance: NILOTINIB
     Indication: Chronic myeloid leukaemia
     Dosage: 300 MG, Q12H
     Route: 048
     Dates: start: 202108, end: 202110
  2. TASIGNA [Suspect]
     Active Substance: NILOTINIB
     Dosage: 300 MG, QD
     Route: 048
     Dates: start: 202111
  3. TASIGNA [Suspect]
     Active Substance: NILOTINIB
     Dosage: UNK UNK, Q12H
     Route: 048

REACTIONS (10)
  - Death [Fatal]
  - General physical health deterioration [Unknown]
  - Inappropriate schedule of product administration [Unknown]
  - Platelet count decreased [Unknown]
  - Malaise [Unknown]
  - Discouragement [Unknown]
  - Asthenia [Unknown]
  - Blast crisis in myelogenous leukaemia [Unknown]
  - Chronic myeloid leukaemia recurrent [Unknown]
  - Rash [Unknown]

NARRATIVE: CASE EVENT DATE: 20220301
